FAERS Safety Report 4393328-5 (Version None)
Quarter: 2004Q3

REPORT INFORMATION
  Report Type: 
  Country: None (occurrence: None)
  Receive Date: 20040701
  Receipt Date: 20040622
  Transmission Date: 20050211
  Serious: Yes (Hospitalization)
  Sender: FDA-Public Use
  Company Number: 2003180344DE

PATIENT
  Age: 62 Year
  Sex: Male

DRUGS (4)
  1. CAMPTOSAR [Suspect]
     Indication: COLON CANCER
     Dosage: 150 MG, CYCLIC, IV
     Route: 042
     Dates: start: 20030723, end: 20030806
  2. MADOPAR (BENSERAZIDE HYDROCHLORIDE) [Concomitant]
  3. NACOM [Concomitant]
  4. SIFROL [Concomitant]

REACTIONS (3)
  - DEHYDRATION [None]
  - INFECTION [None]
  - PSYCHOTIC DISORDER [None]
